FAERS Safety Report 21733099 (Version 1)
Quarter: 2022Q4

REPORT INFORMATION
  Report Type: Spontaneous
  Country: CN (occurrence: CN)
  Receive Date: 20221215
  Receipt Date: 20221215
  Transmission Date: 20230112
  Serious: Yes (Other)
  Sender: FDA-Public Use
  Company Number: CN-GLAXOSMITHKLINE-CN2022APC184697

PATIENT

DRUGS (5)
  1. LAMICTAL [Suspect]
     Active Substance: LAMOTRIGINE
     Indication: Bipolar disorder
     Dosage: 75 MG, QD 1 DAY
     Route: 048
     Dates: start: 20221102, end: 20221121
  2. LAMICTAL [Suspect]
     Active Substance: LAMOTRIGINE
     Indication: Psychotic symptom
  3. ZYPREXA [Suspect]
     Active Substance: OLANZAPINE
     Indication: Bipolar disorder
     Dosage: 10 MG, QD 1 DAY
     Route: 048
     Dates: start: 20221101, end: 20221111
  4. ZYPREXA [Suspect]
     Active Substance: OLANZAPINE
     Indication: Psychotic symptom
     Dosage: 15 MG, QD 1 DAY
     Route: 048
     Dates: start: 20221111, end: 20221117
  5. ZYPREXA [Suspect]
     Active Substance: OLANZAPINE
     Dosage: 17.5 MG, QD 1 DAY
     Route: 048
     Dates: start: 20221117, end: 20221118

REACTIONS (5)
  - Galactorrhoea [Recovered/Resolved]
  - Blood prolactin increased [Unknown]
  - Headache [Recovered/Resolved]
  - Off label use [Unknown]
  - Product use issue [Unknown]

NARRATIVE: CASE EVENT DATE: 20221118
